FAERS Safety Report 7316236-6 (Version None)
Quarter: 2011Q1

REPORT INFORMATION
  Report Type: 
  Country: None (occurrence: None)
  Receive Date: 20110225
  Receipt Date: 20110221
  Transmission Date: 20110831
  Serious: Yes (Hospitalization)
  Sender: FDA-Public Use
  Company Number: US-ABBOTT-11P-163-0706348-00

PATIENT
  Sex: Female
  Weight: 64.014 kg

DRUGS (9)
  1. FISH OIL [Concomitant]
     Indication: PRODUCT USED FOR UNKNOWN INDICATION
  2. HUMIRA [Suspect]
     Route: 058
  3. GLUCOSAMINE [Concomitant]
     Indication: PRODUCT USED FOR UNKNOWN INDICATION
  4. MIRALAX [Concomitant]
     Indication: PRODUCT USED FOR UNKNOWN INDICATION
  5. PANTOPRAZOLE [Concomitant]
     Indication: PRODUCT USED FOR UNKNOWN INDICATION
  6. PREDNISONE [Concomitant]
     Indication: PRODUCT USED FOR UNKNOWN INDICATION
  7. HUMIRA [Suspect]
     Route: 058
     Dates: start: 20090101, end: 20100101
  8. HUMIRA [Suspect]
     Indication: CROHN'S DISEASE
     Route: 058
     Dates: start: 20100101, end: 20100101
  9. MULTI-VITAMIN [Concomitant]
     Indication: PRODUCT USED FOR UNKNOWN INDICATION

REACTIONS (10)
  - HYPOAESTHESIA [None]
  - CROHN'S DISEASE [None]
  - GASTROINTESTINAL HAEMORRHAGE [None]
  - PARAESTHESIA [None]
  - HYPERAESTHESIA [None]
  - URTICARIA [None]
  - PRURITUS [None]
  - RECTAL HAEMORRHAGE [None]
  - ERYTHEMA [None]
  - GASTROINTESTINAL INFLAMMATION [None]
